FAERS Safety Report 24676755 (Version 1)
Quarter: 2024Q4

REPORT INFORMATION
  Report Type: Report from Study
  Country: US (occurrence: US)
  Receive Date: 20241128
  Receipt Date: 20241128
  Transmission Date: 20250115
  Serious: Yes (Other)
  Sender: ABBVIE
  Company Number: US-ABBVIE-6014122

PATIENT
  Age: 79 Year
  Sex: Female
  Weight: 79 kg

DRUGS (9)
  1. RESTASIS [Suspect]
     Active Substance: CYCLOSPORINE
     Indication: Dry eye
     Dosage: 1 DROP EACH EYE MORNING AND EVENING
     Route: 047
     Dates: start: 2020
  2. RESTASIS [Suspect]
     Active Substance: CYCLOSPORINE
     Route: 047
  3. RESTASIS [Suspect]
     Active Substance: CYCLOSPORINE
     Route: 047
  4. NURTEC ODT [Concomitant]
     Active Substance: RIMEGEPANT SULFATE
     Indication: Migraine
     Dosage: TIME INTERVAL: AS NECESSARY
  5. TOPIRAMATE [Concomitant]
     Active Substance: TOPIRAMATE
     Indication: Migraine
     Dosage: TIME INTERVAL: AS NECESSARY
  6. ESCITALOPRAM [Concomitant]
     Active Substance: ESCITALOPRAM OXALATE
     Indication: Product used for unknown indication
  7. ROSUVASTATIN [Concomitant]
     Active Substance: ROSUVASTATIN
     Indication: Product used for unknown indication
     Route: 065
  8. AMLODIPINE [Concomitant]
     Active Substance: AMLODIPINE BESYLATE
     Indication: Hypertension
     Route: 065
  9. ASPIRIN [Concomitant]
     Active Substance: ASPIRIN
     Indication: Hypertension
     Route: 065

REACTIONS (8)
  - Cataract [Unknown]
  - Expired product administered [Not Recovered/Not Resolved]
  - Ocular hyperaemia [Not Recovered/Not Resolved]
  - Eye pruritus [Not Recovered/Not Resolved]
  - Anxiety [Not Recovered/Not Resolved]
  - Haemoglobin decreased [Recovered/Resolved]
  - Panic attack [Not Recovered/Not Resolved]
  - Eye irritation [Unknown]

NARRATIVE: CASE EVENT DATE: 20240101
